FAERS Safety Report 10672487 (Version 1)
Quarter: 2014Q4

REPORT INFORMATION
  Report Type: Spontaneous
  Country: US (occurrence: US)
  Receive Date: 20141223
  Receipt Date: 20141223
  Transmission Date: 20150529
  Serious: Yes (Other)
  Sender: FDA-Public Use
  Company Number: US-ELI_LILLY_AND_COMPANY-US201412006877

PATIENT
  Sex: Male

DRUGS (1)
  1. CYMBALTA [Suspect]
     Active Substance: DULOXETINE HYDROCHLORIDE
     Indication: PRODUCT USED FOR UNKNOWN INDICATION
     Dosage: UNK, UNKNOWN
     Route: 065
     Dates: start: 2004, end: 201312

REACTIONS (9)
  - Depression [Unknown]
  - Violence-related symptom [Unknown]
  - Headache [Unknown]
  - Mood swings [Unknown]
  - Anger [Unknown]
  - Agitation [Unknown]
  - Irritability [Unknown]
  - Drug withdrawal syndrome [Unknown]
  - Social phobia [Unknown]

NARRATIVE: CASE EVENT DATE: 201312
